FAERS Safety Report 24739212 (Version 1)
Quarter: 2024Q4

REPORT INFORMATION
  Report Type: Spontaneous
  Country: US (occurrence: US)
  Receive Date: 20241216
  Receipt Date: 20241216
  Transmission Date: 20250115
  Serious: No
  Sender: BRISTOL-MYERS SQUIBB COMPANY
  Company Number: US-BRISTOL-MYERS SQUIBB COMPANY-2024-195196

PATIENT
  Sex: Female

DRUGS (1)
  1. MAVACAMTEN [Suspect]
     Active Substance: MAVACAMTEN
     Indication: Product used for unknown indication
     Dosage: FREQUENCY-DAILY

REACTIONS (3)
  - Cardiac murmur [Unknown]
  - Dyspnoea exertional [Unknown]
  - Inability to afford medication [Unknown]
